FAERS Safety Report 9277042 (Version 1)
Quarter: 2013Q2

REPORT INFORMATION
  Report Type: Spontaneous
  Country: BR (occurrence: None)
  Receive Date: 20130501
  Receipt Date: 20130501
  Transmission Date: 20140414
  Serious: Yes (Hospitalization)
  Sender: FDA-Public Use
  Company Number: VAL_02312_2013

PATIENT
  Sex: Male

DRUGS (8)
  1. SELOZOK [Suspect]
     Indication: HYPERTENSION
  2. RASILEZ AMLO [Suspect]
     Indication: HYPERTENSION
     Dosage: (300MG ALISKIRE/UNK ALMO)
  3. APRESOLIN [Suspect]
     Indication: HYPERTENSION
  4. DIOVAN [Suspect]
     Indication: PRODUCT USED FOR UNKNOWN INDICATION
  5. FORASEQ [Suspect]
     Indication: PRODUCT USED FOR UNKNOWN INDICATION
     Dosage: (400/12 UG)?
  6. ENALAPRIL [Suspect]
     Indication: HYPERTENSION
  7. ATENSIN [Suspect]
     Indication: HYPERTENSION
  8. PRESSAT [Suspect]
     Indication: HYPERTENSION

REACTIONS (8)
  - Hypertensive crisis [None]
  - Drug dose omission [None]
  - Haemodialysis [None]
  - Coronary arterial stent insertion [None]
  - Chronic obstructive pulmonary disease [None]
  - Blood pressure inadequately controlled [None]
  - Drug dependence [None]
  - Renal disorder [None]
